FAERS Safety Report 5173265-9 (Version None)
Quarter: 2006Q4

REPORT INFORMATION
  Report Type: 
  Country: None (occurrence: None)
  Receive Date: 20061208
  Receipt Date: 20061117
  Transmission Date: 20070319
  Serious: Yes (Death, Life-Threatening, Hospitalization, Disabling)
  Sender: FDA-Public Use
  Company Number: DSA_29061_2006

PATIENT
  Age: 83 Year
  Sex: Female
  Weight: 89.3586 kg

DRUGS (15)
  1. CARDIZEM [Suspect]
     Indication: ATRIAL FIBRILLATION
     Dosage: DF IV
     Route: 042
  2. CARDIZEM [Suspect]
     Indication: ATRIAL FIBRILLATION
     Dosage: DF IV
     Route: 042
  3. DIGOXIN [Suspect]
     Indication: ATRIAL FIBRILLATION
     Dosage: 0.25 MG IV
     Route: 042
     Dates: start: 20050101
  4. PROCRIT [Suspect]
     Indication: ANAEMIA
     Dosage: 40000 IU SC
     Route: 058
     Dates: start: 20050818, end: 20050901
  5. LASIX [Concomitant]
  6. ALBUMIN (HUMAN) [Concomitant]
  7. LATANOPROST [Concomitant]
  8. PROTONIX [Concomitant]
  9. MORPHINE [Concomitant]
  10. LOVENOX [Concomitant]
  11. MAGNESIUM SULFATE [Concomitant]
  12. POTASSIUM CHLORIDE [Concomitant]
  13. IRON [Concomitant]
  14. FOSUPENEM [Concomitant]
  15. XIGUS [Concomitant]

REACTIONS (10)
  - ACUTE PULMONARY OEDEMA [None]
  - ATRIAL FIBRILLATION [None]
  - CARDIAC ARREST [None]
  - CONDITION AGGRAVATED [None]
  - DISEASE RECURRENCE [None]
  - DRUG INTERACTION [None]
  - HAEMODIALYSIS [None]
  - HYPOXIC ENCEPHALOPATHY [None]
  - RENAL FAILURE ACUTE [None]
  - RESPIRATORY DISTRESS [None]
